FAERS Safety Report 11195267 (Version 1)
Quarter: 2015Q2

REPORT INFORMATION
  Report Type: Spontaneous
  Country: US (occurrence: None)
  Receive Date: 20150615
  Receipt Date: 20150615
  Transmission Date: 20150821
  Serious: Yes (Hospitalization)
  Sender: FDA-Public Use
  Company Number: US-H14001-15-00923

PATIENT
  Age: 65 Year
  Sex: Male

DRUGS (8)
  1. LISINOPRIL (LISINOPRIL) (LISINOPRIL) [Suspect]
     Active Substance: LISINOPRIL
     Indication: PRODUCT USED FOR UNKNOWN INDICATION
  2. MORTON^S SALT SUBSTITUTE (POTASSIUM CHLORIDE) (UNKNOWN) (POTASSIUM CHLORIDE) [Suspect]
     Active Substance: POTASSIUM CHLORIDE
     Indication: PRODUCT USED FOR UNKNOWN INDICATION
     Dosage: 3  TABLESPOONS
  3. FUROSEMIDE (FUROSEMIDE) UNKNOWN [Suspect]
     Active Substance: FUROSEMIDE
     Indication: PRODUCT USED FOR UNKNOWN INDICATION
  4. ASPRIN [Suspect]
     Active Substance: ASPIRIN
     Indication: PRODUCT USED FOR UNKNOWN INDICATION
  5. METOPROLOL (METOPROLOL) (METOPROLOL) [Suspect]
     Active Substance: METOPROLOL
     Indication: PRODUCT USED FOR UNKNOWN INDICATION
  6. CLOPIDOGREL [Suspect]
     Active Substance: CLOPIDOGREL BISULFATE
     Indication: PRODUCT USED FOR UNKNOWN INDICATION
  7. SPIRONOLACTONE (SPIRONOLACTONE) (SPIRONOLACTONE) [Suspect]
     Active Substance: SPIRONOLACTONE
     Indication: PRODUCT USED FOR UNKNOWN INDICATION
  8. HIGH-INTENSITY STATIN (HMG COA REDUCTASE INHIBITORS) (UNKNOWN) [Suspect]
     Active Substance: UNSPECIFIED INGREDIENT
     Indication: PRODUCT USED FOR UNKNOWN INDICATION

REACTIONS (8)
  - Bradycardia [None]
  - Cardiac arrest [None]
  - Sinus arrest [None]
  - Hyperkalaemia [None]
  - Haemodialysis [None]
  - Dizziness postural [None]
  - Asthenia [None]
  - Lethargy [None]
